FAERS Safety Report 18065954 (Version 1)
Quarter: 2020Q3

REPORT INFORMATION
  Report Type: Spontaneous
  Country: US (occurrence: US)
  Receive Date: 20200724
  Receipt Date: 20200724
  Transmission Date: 20201103
  Serious: Yes (Hospitalization)
  Sender: FDA-Public Use
  Company Number: None

PATIENT
  Age: 65 Year
  Sex: Male

DRUGS (13)
  1. AMITRIPYLN [Concomitant]
  2. MELATONIN [Concomitant]
     Active Substance: MELATONIN
  3. PROBIOTIC [Concomitant]
     Active Substance: PROBIOTICS NOS
  4. TRAMADOL. [Concomitant]
     Active Substance: TRAMADOL
  5. CHLORDIAZEP [Concomitant]
  6. FENOFIBRATE. [Concomitant]
     Active Substance: FENOFIBRATE
  7. TURMERIC [Concomitant]
     Active Substance: HERBALS\TURMERIC
  8. CAPECITABINE. [Suspect]
     Active Substance: CAPECITABINE
     Indication: RECTOSIGMOID CANCER
     Route: 048
     Dates: start: 20190816
  9. SELRNIUM [Concomitant]
  10. CHROMIUM [Concomitant]
     Active Substance: CHROMIC CHLORIDE\CHROMIUM
  11. VITAMIN D3 [Concomitant]
     Active Substance: CHOLECALCIFEROL
  12. GLEMPIRIDE [Concomitant]
  13. HYDROCHLOROT [Concomitant]
     Active Substance: HYDROCHLOROTHIAZIDE

REACTIONS (1)
  - Palmar-plantar erythrodysaesthesia syndrome [None]

NARRATIVE: CASE EVENT DATE: 20200720
